FAERS Safety Report 8029861-4 (Version None)
Quarter: 2012Q1

REPORT INFORMATION
  Report Type: 
  Country: None (occurrence: None)
  Receive Date: 20120109
  Receipt Date: 20120103
  Transmission Date: 20120608
  Serious: Yes (Hospitalization)
  Sender: FDA-Public Use
  Company Number: US-ELI_LILLY_AND_COMPANY-US201111000999

PATIENT
  Sex: Female
  Weight: 100.68 kg

DRUGS (24)
  1. LIDOCAINE [Concomitant]
     Dosage: UNK
  2. DIPHENHYDRAMINE HCL [Concomitant]
     Dosage: 50 MG, PRN
  3. ISOSORBIDE DINITRATE [Concomitant]
     Dosage: 30 MG, QD
     Route: 048
  4. MIRTAZAPINE [Concomitant]
     Dosage: 15 MG, EACH EVENING
     Route: 048
  5. SYNTHROID [Concomitant]
     Dosage: 175 MEQ, QD
     Route: 048
  6. BUMETANIDE [Concomitant]
     Dosage: 1 MG, BID
  7. SIMVASTATIN [Concomitant]
     Dosage: 10 MG, EACH EVENING
     Route: 048
  8. LORAZEPAM [Concomitant]
     Dosage: 1 MG, TID
     Route: 048
  9. NEXIUM [Concomitant]
     Dosage: 40 MG, QD
  10. ASPIRIN [Concomitant]
     Dosage: 81 MG, QD
     Route: 048
  11. HUMALOG [Suspect]
     Dosage: UNK, TID
  12. PHENERGAN [Concomitant]
     Indication: NAUSEA
     Dosage: 25 MG, PRN
     Route: 048
  13. NASONEX [Concomitant]
     Dosage: 50 MEQ, QD
  14. VITAMIN B-12 [Concomitant]
     Dosage: 1000 MEQ, OTHER
  15. HUMALOG [Suspect]
     Indication: TYPE 2 DIABETES MELLITUS
     Dosage: UNK UNK, QID
  16. MULTI-VITAMIN [Concomitant]
     Dosage: UNK
  17. LYRICA [Concomitant]
     Indication: NEUROPATHY PERIPHERAL
     Dosage: UNK
     Dates: start: 20110501
  18. METOPROLOL SUCCINATE [Concomitant]
     Dosage: 50 MG, QD
     Route: 048
  19. NITROGLYCERIN [Concomitant]
     Indication: CHEST PAIN
     Dosage: UNK, PRN
  20. ROXICODONE [Concomitant]
     Dosage: 5 MG, TID
     Route: 048
  21. LISINOPRIL [Concomitant]
     Dosage: 5 MG, QD
     Route: 048
  22. XOPENEX [Concomitant]
     Dosage: UNK, PRN
  23. SPIRIVA [Concomitant]
     Dosage: 18 MEQ, QD
  24. MIACALCIN [Concomitant]
     Dosage: UNK, QD

REACTIONS (2)
  - MALAISE [None]
  - CORONARY ARTERY DISEASE [None]
